FAERS Safety Report 16616968 (Version 1)
Quarter: 2019Q3

REPORT INFORMATION
  Report Type: Spontaneous
  Country: JP (occurrence: JP)
  Receive Date: 20190723
  Receipt Date: 20190723
  Transmission Date: 20191004
  Serious: Yes (Other)
  Sender: FDA-Public Use
  Company Number: JP-PFIZER INC-2019308548

PATIENT
  Age: 4 Year
  Sex: Female
  Weight: 16.7 kg

DRUGS (2)
  1. PREDNISOLONE. [Suspect]
     Active Substance: PREDNISOLONE
     Indication: RASMUSSEN ENCEPHALITIS
     Dosage: 1 MG/KG, DAILY
     Route: 048
  2. METHYLPREDNISOLONE SODIUM SUCCINATE. [Suspect]
     Active Substance: METHYLPREDNISOLONE SODIUM SUCCINATE
     Indication: RASMUSSEN ENCEPHALITIS
     Dosage: 30 MG/KG, 2 CYCLES (30 MG/KG/DAY FOR 3 DAYS)

REACTIONS (3)
  - Off label use [Unknown]
  - Product use in unapproved indication [Unknown]
  - Subdural haematoma [Recovered/Resolved]
